FAERS Safety Report 10186236 (Version 1)
Quarter: 2014Q2

REPORT INFORMATION
  Report Type: Spontaneous
  Country: FR (occurrence: FR)
  Receive Date: 20140521
  Receipt Date: 20140521
  Transmission Date: 20141212
  Serious: Yes (Life-Threatening, Hospitalization)
  Sender: FDA-Public Use
  Company Number: FR-GLAXOSMITHKLINE-B0994077A

PATIENT
  Age: 85 Year
  Sex: Female

DRUGS (1)
  1. ARIXTRA [Suspect]
     Indication: PULMONARY EMBOLISM
     Dosage: 5MG PER DAY
     Route: 058
     Dates: start: 20140422, end: 20140501

REACTIONS (3)
  - Shock haemorrhagic [Recovered/Resolved]
  - Haematoma [Not Recovered/Not Resolved]
  - Anaemia [Recovered/Resolved]
